FAERS Safety Report 25136451 (Version 1)
Quarter: 2025Q1

REPORT INFORMATION
  Report Type: Spontaneous
  Country: CN (occurrence: CN)
  Receive Date: 20250328
  Receipt Date: 20250328
  Transmission Date: 20250409
  Serious: Yes (Hospitalization, Other)
  Sender: Kenvue
  Company Number: CN-KENVUE-20250307887

PATIENT

DRUGS (4)
  1. TYLENOL [Suspect]
     Active Substance: ACETAMINOPHEN
     Indication: Body temperature decreased
     Dosage: 0.65 GRAM, ONCE A DAY
     Route: 048
     Dates: start: 20250218
  2. TYLENOL [Suspect]
     Active Substance: ACETAMINOPHEN
     Indication: Antipyresis
  3. AMOXICILLIN [Suspect]
     Active Substance: AMOXICILLIN
     Indication: Pyrexia
     Dosage: 2 DOSAGE FORM, TWICE A DAY
     Route: 048
     Dates: start: 202502
  4. CEFIXIME [Suspect]
     Active Substance: CEFIXIME
     Indication: Pyrexia
     Dosage: 2 DOSAGE FORM, TWICE A DAY
     Route: 065
     Dates: start: 202502

REACTIONS (3)
  - Inappropriate schedule of product administration [Unknown]
  - Cough [Recovering/Resolving]
  - Liver injury [Recovering/Resolving]

NARRATIVE: CASE EVENT DATE: 20250101
